FAERS Safety Report 6986744-6 (Version None)
Quarter: 2010Q3

REPORT INFORMATION
  Report Type: 
  Country: None (occurrence: None)
  Receive Date: 20100915
  Receipt Date: 20090807
  Transmission Date: 20110219
  Serious: No
  Sender: FDA-Public Use
  Company Number: US-WYE-H10526009

PATIENT
  Sex: Female
  Weight: 104.42 kg

DRUGS (3)
  1. PRISTIQ [Suspect]
     Indication: DEPRESSION
     Route: 048
     Dates: start: 20080601, end: 20090712
  2. PRISTIQ [Suspect]
     Route: 048
     Dates: start: 20090713, end: 20090719
  3. PRISTIQ [Suspect]
     Route: 048
     Dates: start: 20090722, end: 20090731

REACTIONS (9)
  - DISTURBANCE IN ATTENTION [None]
  - DIZZINESS [None]
  - DRUG WITHDRAWAL SYNDROME [None]
  - FEELING ABNORMAL [None]
  - HYPERHIDROSIS [None]
  - MEMORY IMPAIRMENT [None]
  - NAUSEA [None]
  - NEGATIVE THOUGHTS [None]
  - NIGHTMARE [None]
